FAERS Safety Report 8243185-1 (Version None)
Quarter: 2012Q1

REPORT INFORMATION
  Report Type: 
  Country: None (occurrence: None)
  Receive Date: 20120329
  Receipt Date: 20120320
  Transmission Date: 20120608
  Serious: Yes (Other)
  Sender: FDA-Public Use
  Company Number: CN-JNJFOC-20120311930

PATIENT

DRUGS (2)
  1. RISPERIDONE [Suspect]
     Indication: SCHIZOPHRENIA
     Route: 048
  2. MIRTAZAPINE [Suspect]
     Indication: SCHIZOPHRENIA
     Route: 065

REACTIONS (12)
  - PARKINSONISM [None]
  - ANXIETY [None]
  - DYSPEPSIA [None]
  - SEDATION [None]
  - WEIGHT INCREASED [None]
  - HEPATIC LESION [None]
  - AKATHISIA [None]
  - TREMOR [None]
  - DIZZINESS [None]
  - SOMNOLENCE [None]
  - NAUSEA [None]
  - VOMITING [None]
